FAERS Safety Report 17353235 (Version 1)
Quarter: 2020Q1

REPORT INFORMATION
  Report Type: Spontaneous
  Country: NL (occurrence: NL)
  Receive Date: 20200131
  Receipt Date: 20200131
  Transmission Date: 20200409
  Serious: Yes (Hospitalization)
  Sender: FDA-Public Use
  Company Number: NL-VIFOR (INTERNATIONAL) INC.-VIT-2020-01487

PATIENT
  Sex: Male
  Weight: 110 kg

DRUGS (20)
  1. SPIRONOLACTON [Concomitant]
     Active Substance: SPIRONOLACTONE
     Route: 065
  2. GLUCAGON. [Concomitant]
     Active Substance: GLUCAGON
     Route: 065
  3. CALCIUM CARBONATE/COLECALCIFEROL [Concomitant]
     Active Substance: CALCIUM CARBONATE\CHOLECALCIFEROL
  4. BUMETANIDE. [Concomitant]
     Active Substance: BUMETANIDE
     Route: 065
  5. TELMISARTAN. [Concomitant]
     Active Substance: TELMISARTAN
     Route: 065
  6. METFORMIN [Concomitant]
     Active Substance: METFORMIN HYDROCHLORIDE
     Route: 065
  7. CARBAMAZEPINE. [Concomitant]
     Active Substance: CARBAMAZEPINE
     Route: 065
  8. SODIUM HYPOCHLORITE [Concomitant]
     Active Substance: SODIUM HYPOCHLORITE
     Dosage: 2,5MG/G
     Route: 065
  9. CIPROFLOXACINE [CIPROFLOXACIN] [Concomitant]
     Active Substance: CIPROFLOXACIN
     Route: 065
  10. DIGOXINE [Concomitant]
     Active Substance: DIGOXIN
     Route: 065
  11. POLYSTYRENE SULFON [Concomitant]
  12. ALFACALCIDOL [Concomitant]
     Active Substance: ALFACALCIDOL
     Dosage: 2UG/ML
     Route: 065
  13. GABAPENTINE [Concomitant]
     Active Substance: GABAPENTIN
     Route: 065
  14. INSULIN DEGLUDEC [Concomitant]
     Active Substance: INSULIN DEGLUDEC
     Route: 065
  15. FENTANYL TRANSDERMAL SYSTEM [Concomitant]
     Active Substance: FENTANYL
     Route: 065
  16. SITAGLIPTINE [Concomitant]
     Active Substance: SITAGLIPTIN
     Route: 065
  17. PANTOPRAZOL [PANTOPRAZOLE] [Concomitant]
     Active Substance: PANTOPRAZOLE
     Route: 065
  18. FENPROCOUMON [Concomitant]
     Active Substance: PHENPROCOUMON
     Route: 065
  19. MIRCERA [Suspect]
     Active Substance: METHOXY POLYETHYLENE GLYCOL-EPOETIN BETA
     Indication: NEPHROGENIC ANAEMIA
     Route: 065
     Dates: start: 2018
  20. MACROGOL [Concomitant]
     Active Substance: POLYETHYLENE GLYCOLS
     Route: 065

REACTIONS (1)
  - Skin infection [Unknown]
